FAERS Safety Report 13076212 (Version 2)
Quarter: 2017Q1

REPORT INFORMATION
  Report Type: Spontaneous
  Country: FR (occurrence: FR)
  Receive Date: 20161230
  Receipt Date: 20170123
  Transmission Date: 20170428
  Serious: Yes (Disabling)
  Sender: FDA-Public Use
  Company Number: FR-CELGENEUS-FRA-2016125728

PATIENT
  Age: 46 Year
  Sex: Male
  Weight: 84 kg

DRUGS (4)
  1. OTEZLA [Suspect]
     Active Substance: APREMILAST
     Indication: PSORIASIS
     Dosage: 60 MILLIGRAM
     Route: 048
     Dates: start: 20161014, end: 20161129
  2. PREDNISONE. [Concomitant]
     Active Substance: PREDNISONE
     Indication: TONSILLITIS
     Dosage: 60 MILLIGRAM
     Route: 048
     Dates: start: 20161124, end: 20161124
  3. OTEZLA [Suspect]
     Active Substance: APREMILAST
     Dosage: 60 MILLIGRAM
     Route: 048
     Dates: start: 20161205
  4. AMOXICILLINE [Concomitant]
     Active Substance: AMOXICILLIN
     Indication: TONSILLITIS
     Route: 048
     Dates: start: 201611

REACTIONS (4)
  - Muscle spasms [Recovered/Resolved]
  - Angina pectoris [Recovering/Resolving]
  - Diarrhoea [Recovering/Resolving]
  - Arthralgia [Recovered/Resolved]

NARRATIVE: CASE EVENT DATE: 20161124
